FAERS Safety Report 21870573 (Version 1)
Quarter: 2023Q1

REPORT INFORMATION
  Report Type: Spontaneous
  Country: US (occurrence: None)
  Receive Date: 20230113
  Receipt Date: 20230113
  Transmission Date: 20230417
  Serious: Yes (Hospitalization)
  Sender: FDA-Public Use
  Company Number: None

PATIENT
  Age: 56 Year
  Sex: Female

DRUGS (1)
  1. AUBAGIO [Suspect]
     Active Substance: TERIFLUNOMIDE
     Dosage: 7MG DAILY ORAL
     Route: 048

REACTIONS (3)
  - Product dose omission issue [None]
  - Joint noise [None]
  - Pain in extremity [None]

NARRATIVE: CASE EVENT DATE: 20220207
